FAERS Safety Report 16963804 (Version 1)
Quarter: 2019Q4

REPORT INFORMATION
  Report Type: Spontaneous
  Country: JP (occurrence: JP)
  Receive Date: 20191026
  Receipt Date: 20191026
  Transmission Date: 20200122
  Serious: Yes (Hospitalization, Other)
  Sender: FDA-Public Use
  Company Number: JP-AMGEN-JPNSP2019176697

PATIENT
  Age: 78 Year
  Sex: Female

DRUGS (1)
  1. PRALIA [Suspect]
     Active Substance: DENOSUMAB
     Indication: OSTEOPOROSIS
     Dosage: UNK
     Route: 065

REACTIONS (6)
  - Blood alkaline phosphatase increased [Unknown]
  - Acute kidney injury [Recovered/Resolved]
  - Hyponatraemia [Unknown]
  - Rhabdomyolysis [Unknown]
  - Fall [Unknown]
  - Decreased appetite [Unknown]
